FAERS Safety Report 8178003-3 (Version None)
Quarter: 2012Q1

REPORT INFORMATION
  Report Type: 
  Country: None (occurrence: None)
  Receive Date: 20120130
  Receipt Date: 20110708
  Transmission Date: 20120608
  Serious: Yes (Hospitalization, Other)
  Sender: FDA-Public Use
  Company Number: 036874

PATIENT
  Age: 29 Year
  Sex: Female
  Weight: 100 kg

DRUGS (19)
  1. ESCITALOPRAM [Concomitant]
  2. SERTRALINE HYDROCHLORIDE [Concomitant]
  3. ZONISAMIDE [Concomitant]
  4. ASPIRIN [Concomitant]
  5. QUETIAPINE [Concomitant]
  6. PHENYTOIN [Concomitant]
  7. OXCARBAZEPINE [Concomitant]
  8. LAMOTRIGINE [Concomitant]
  9. PHENOBARBITAL TAB [Concomitant]
  10. FLUOXETINE [Concomitant]
  11. CARBAMAZEPINE [Concomitant]
  12. DULOXETIME HYDROCHLORIDE [Concomitant]
  13. ARIPIPRAZOLE [Concomitant]
  14. IBUPROFEN TABLETS [Concomitant]
  15. DIVALPROEX SODIUM [Concomitant]
  16. TOPIRAMATE [Concomitant]
  17. CITALOPRAM HYDROBROMIDE [Concomitant]
  18. KEPPRA [Suspect]
     Indication: CONVULSION
     Dosage: (3000MG YEARS AGO), (500MG)
     Dates: start: 20110101, end: 20110101
  19. PREGABALIN [Concomitant]

REACTIONS (7)
  - DRUG INEFFECTIVE [None]
  - CONVULSION [None]
  - SUICIDE ATTEMPT [None]
  - ANGER [None]
  - SUICIDAL IDEATION [None]
  - FATIGUE [None]
  - MALAISE [None]
